FAERS Safety Report 5493176-9 (Version None)
Quarter: 2007Q4

REPORT INFORMATION
  Report Type: 
  Country: None (occurrence: None)
  Receive Date: 20071023
  Receipt Date: 20071010
  Transmission Date: 20080405
  Serious: Yes (Hospitalization)
  Sender: FDA-Public Use
  Company Number: US-AMGEN-US247387

PATIENT
  Sex: Female

DRUGS (9)
  1. ENBREL [Suspect]
     Indication: RHEUMATOID ARTHRITIS
     Route: 065
  2. PROZAC [Concomitant]
     Route: 065
     Dates: start: 20020701
  3. OXYCONTIN [Concomitant]
     Route: 065
     Dates: start: 20010101
  4. PREDNISONE [Concomitant]
     Route: 065
     Dates: start: 19980101
  5. LOTREL [Concomitant]
     Route: 065
     Dates: start: 20020101
  6. PROTONIX [Concomitant]
     Route: 065
     Dates: start: 20020101
  7. REGLAN [Concomitant]
     Route: 065
     Dates: start: 20021102, end: 20021122
  8. VANCOMYCIN [Concomitant]
     Route: 042
     Dates: start: 20021102, end: 20021126
  9. METHOTREXATE [Concomitant]
     Route: 065
     Dates: start: 19980101

REACTIONS (14)
  - BLOOD GLUCOSE INCREASED [None]
  - CELLULITIS [None]
  - DEHYDRATION [None]
  - DUODENAL ULCER [None]
  - GALLBLADDER DISORDER [None]
  - HAEMATOCRIT DECREASED [None]
  - HAEMOGLOBIN DECREASED [None]
  - HEPATIC ENZYME INCREASED [None]
  - HYPONATRAEMIA [None]
  - PNEUMOTHORAX [None]
  - STAPHYLOCOCCAL INFECTION [None]
  - UPPER GASTROINTESTINAL HAEMORRHAGE [None]
  - UPPER LIMB FRACTURE [None]
  - WHITE BLOOD CELL COUNT INCREASED [None]
